FAERS Safety Report 6785083-6 (Version None)
Quarter: 2010Q2

REPORT INFORMATION
  Report Type: 
  Country: None (occurrence: None)
  Receive Date: 20100618
  Receipt Date: 20100607
  Transmission Date: 20101027
  Serious: Yes (Hospitalization)
  Sender: FDA-Public Use
  Company Number: 1000014519

PATIENT
  Age: 67 Year
  Sex: Male

DRUGS (16)
  1. ESCITALOPRAM OXALATE [Suspect]
     Dosage: 30 MG (30 MG, 1 IN 1 D), ORAL
     Route: 048
     Dates: start: 20091222, end: 20100124
  2. ESCITALOPRAM OXALATE [Suspect]
     Dosage: 15 MG (15 MG, 1 IN 1 D, ORAL)
     Route: 048
     Dates: start: 20100125, end: 20100203
  3. ESCITALOPRAM OXALATE [Suspect]
     Dosage: 10 MG (10 MG, 1 IN 1 D), ORAL; 20 MG (20 MG, 1 IN 1 D), ORAL
     Route: 048
     Dates: start: 20091105, end: 20091211
  4. ESCITALOPRAM OXALATE [Suspect]
     Dosage: 10 MG (10 MG, 1 IN 1 D), ORAL; 20 MG (20 MG, 1 IN 1 D), ORAL
     Route: 048
     Dates: start: 20091212, end: 20091221
  5. REMERGIL [Suspect]
     Dosage: 60 MG ( 60 MG, 1 IN 1 D), ORAL
     Route: 048
     Dates: start: 20091013, end: 20100125
  6. REMERGIL [Suspect]
     Dosage: 45 MG ( 45 MG, 1 IN 1 D), ORAL; 30 MG (30 MG, 1 IN1  D), ORAL
     Route: 048
     Dates: end: 20091009
  7. QUILONUM [Suspect]
     Dosage: 225 MG (225 MG, 1 IN 1 D), ORAL
     Route: 048
     Dates: start: 20100104, end: 20100111
  8. QUILONUM [Suspect]
     Dosage: 450 MG (450 MG, 1 IN 1 D), ORAL
     Route: 048
     Dates: start: 20100112, end: 20100121
  9. LYRICA [Suspect]
     Dosage: 75 MG (75 MG, 1 IN 1 D), ORAL; 50 MG (50 MG, 1 IN  1 D), ORAL
     Route: 048
     Dates: start: 20100119, end: 20100121
  10. LYRICA [Suspect]
     Dosage: 75 MG (75 MG, 1 IN 1 D), ORAL; 50 MG (50 MG, 1 IN  1 D), ORAL
     Route: 048
     Dates: start: 20100122, end: 20100122
  11. LYRICA [Suspect]
     Dosage: 25 MG (25 MG, 1 IN 1 D), ORAL
     Route: 048
     Dates: start: 20100123, end: 20100124
  12. LYRICA [Suspect]
     Dosage: 50 MG (50 MG, 1 IN 1 D), ORAL
     Route: 048
     Dates: start: 20100111, end: 20100118
  13. ALLOPURINOL [Concomitant]
  14. DISALUNIL [Concomitant]
  15. LISINOPRIL [Concomitant]
  16. PANTOZOL [Concomitant]

REACTIONS (3)
  - DELIRIUM [None]
  - DRUG INTERACTION [None]
  - OVERDOSE [None]
